FAERS Safety Report 11321596 (Version 1)
Quarter: 2015Q3

REPORT INFORMATION
  Report Type: Spontaneous
  Country: US (occurrence: US)
  Receive Date: 20150729
  Receipt Date: 20150729
  Transmission Date: 20151125
  Serious: No
  Sender: FDA-Public Use
  Company Number: US-PFIZER INC-2015251550

PATIENT
  Sex: Male

DRUGS (5)
  1. GLIPIZIDE XL [Suspect]
     Active Substance: GLIPIZIDE
     Indication: BLOOD GLUCOSE DECREASED
     Dosage: 5 MG, UNK,(ONCE OR TWICE DAY, HARD TABLET)
  2. GLIPIZIDE. [Suspect]
     Active Substance: GLIPIZIDE
     Dosage: UNK
  3. GLIPIZIDE. [Suspect]
     Active Substance: GLIPIZIDE
     Dosage: UNK
  4. INSULIN [Concomitant]
     Active Substance: INSULIN NOS
     Dosage: UNK
  5. TRADJENTA [Concomitant]
     Active Substance: LINAGLIPTIN
     Dosage: 5 MG, UNK

REACTIONS (5)
  - Blood glucose abnormal [Unknown]
  - Drug ineffective [Unknown]
  - Product quality issue [Unknown]
  - Blood glucose fluctuation [Unknown]
  - Wrong technique in product usage process [Unknown]
